FAERS Safety Report 8950497 (Version 1)
Quarter: 2012Q4

REPORT INFORMATION
  Report Type: 
  Country: HU (occurrence: HU)
  Receive Date: 20121206
  Receipt Date: 20121206
  Transmission Date: 20130627
  Serious: Yes (Other)
  Sender: FDA-Public Use
  Company Number: HU-PFIZER INC-2012303022

PATIENT
  Age: 61 Year
  Sex: Female
  Weight: 69 kg

DRUGS (10)
  1. XALATAN [Suspect]
     Indication: GLAUCOMA
     Dosage: 1 x 1 drop / day
     Dates: start: 2009
  2. XALATAN [Suspect]
     Dosage: 2 x 1 drop / day, in the morning and also in the evening
  3. LAVESTRA [Concomitant]
     Dosage: UNK
  4. LAVESTRA H [Concomitant]
     Dosage: UNK
  5. METOPROLOL [Concomitant]
     Dosage: UNK
  6. DOXILEK [Concomitant]
     Dosage: UNK
  7. INSUMAN RAPID [Concomitant]
     Dosage: UNK
     Dates: start: 2009
  8. INSUMAN BASAL [Concomitant]
     Dosage: UNK
     Dates: start: 2009
  9. COMBIGAN [Concomitant]
     Dosage: UNK
  10. AZOPT [Concomitant]
     Dosage: UNK

REACTIONS (2)
  - Visual impairment [Not Recovered/Not Resolved]
  - Off label use [Not Recovered/Not Resolved]
